FAERS Safety Report 19650680 (Version 2)
Quarter: 2021Q3

REPORT INFORMATION
  Report Type: Other
  Country: US (occurrence: US)
  Receive Date: 20210803
  Receipt Date: 20210804
  Transmission Date: 20211014
  Serious: Yes (Other)
  Sender: FDA-Public Use
  Company Number: US-ROCHE-2881052

PATIENT
  Sex: Male

DRUGS (6)
  1. NUTROPIN [Suspect]
     Active Substance: SOMATROPIN
     Indication: SHORT STATURE
     Dosage: 20 MG/2 ML INJECTION PEN
     Route: 058
  2. MONTELUKAST SODIUM. [Concomitant]
     Active Substance: MONTELUKAST SODIUM
     Route: 048
  3. NUTROPIN [Suspect]
     Active Substance: SOMATROPIN
  4. ARIMIDEX [Concomitant]
     Active Substance: ANASTROZOLE
     Route: 048
  5. ZYRTEC (UNITED STATES) [Concomitant]
     Indication: HEADACHE
     Route: 048
  6. PROAIR HFA [Concomitant]
     Active Substance: ALBUTEROL SULFATE

REACTIONS (2)
  - Intentional product misuse [Unknown]
  - Hernia [Unknown]
